FAERS Safety Report 5387503-0 (Version None)
Quarter: 2007Q3

REPORT INFORMATION
  Report Type: 
  Country: None (occurrence: None)
  Receive Date: 20070711
  Receipt Date: 20070626
  Transmission Date: 20080115
  Serious: Yes (Disabling)
  Sender: FDA-Public Use
  Company Number: GXKR2007TH05507

PATIENT
  Age: 41 Year
  Sex: Male

DRUGS (1)
  1. RIFAMPICIN+ISONIAZID+PYRAZINAMIDE+ETHAMBUTOL DIHYDROCHLORIDE, PYRAZINA [Suspect]
     Indication: PNEUMONITIS
     Dosage: ORAL
     Route: 048
     Dates: start: 20060205, end: 20060222

REACTIONS (10)
  - ARTHRALGIA [None]
  - BLINDNESS [None]
  - DRUG HYPERSENSITIVITY [None]
  - EYE DISORDER [None]
  - EYE HAEMORRHAGE [None]
  - HEADACHE [None]
  - HEPATIC FAILURE [None]
  - MYALGIA [None]
  - PYREXIA [None]
  - RENAL FAILURE [None]
